FAERS Safety Report 6678081-4 (Version None)
Quarter: 2010Q2

REPORT INFORMATION
  Report Type: 
  Country: None (occurrence: None)
  Receive Date: 20100409
  Receipt Date: 20100409
  Transmission Date: 20101027
  Serious: No
  Sender: FDA-Public Use
  Company Number: None

PATIENT
  Age: 41 Year
  Sex: Female
  Weight: 62.5964 kg

DRUGS (1)
  1. NUVARING [Suspect]
     Dates: start: 20091220, end: 20100321

REACTIONS (4)
  - CHRONIC SINUSITIS [None]
  - COUGH [None]
  - PALPITATIONS [None]
  - PULMONARY CONGESTION [None]
